FAERS Safety Report 5939708-5 (Version None)
Quarter: 2008Q4

REPORT INFORMATION
  Report Type: 
  Country: None (occurrence: None)
  Receive Date: 20081030
  Receipt Date: 20081030
  Transmission Date: 20090506
  Serious: Yes (Other)
  Sender: FDA-Public Use
  Company Number: None

PATIENT
  Sex: Female
  Weight: 83.4619 kg

DRUGS (2)
  1. SIMVASTATIN [Suspect]
     Dosage: 40 MG 1 TB BEDTIME
     Dates: start: 20080712
  2. ZOCOR [Suspect]
     Dosage: 40 MG 1/2 TABLET EVERY NIGHT
     Dates: start: 20080712

REACTIONS (10)
  - CYSTITIS INTERSTITIAL [None]
  - DIARRHOEA [None]
  - EYE ALLERGY [None]
  - FACIAL PAIN [None]
  - HYPOPHAGIA [None]
  - MYALGIA [None]
  - NAUSEA [None]
  - PAIN [None]
  - PELVIC PAIN [None]
  - URTICARIA [None]
